FAERS Safety Report 4601210-0 (Version None)
Quarter: 2005Q1

REPORT INFORMATION
  Report Type: 
  Country: None (occurrence: None)
  Receive Date: 20050308
  Receipt Date: 20050208
  Transmission Date: 20050727
  Serious: Yes (Hospitalization, Other)
  Sender: FDA-Public Use
  Company Number: AU-NOVOPROD-242140

PATIENT
  Age: 34 Year
  Sex: Female
  Weight: 230 kg

DRUGS (26)
  1. ACTRAPID [Suspect]
     Indication: DIABETES MELLITUS INSULIN-DEPENDENT
     Dosage: 190 IU, QD
     Dates: start: 20041222
  2. PROTAPHANE [Suspect]
     Indication: DIABETES MELLITUS INSULIN-DEPENDENT
     Dosage: 100 IU, QD
     Dates: start: 20041222
  3. ACCU CHECK ACTIVE TEST STRIP [Concomitant]
  4. AUSGEM [Concomitant]
     Dosage: 600 MG 1 BD AC
  5. BRICANYL [Concomitant]
     Dosage: 500 MCG/DOSE 2 INH. 4 HOURLY PRN
  6. CALTRATE [Concomitant]
     Dosage: 1500 MG, QD (600 MG CA)
  7. CORTIC [Concomitant]
     Dosage: 1 %, CREAM, PRN
  8. DIAZEPAM [Concomitant]
     Dosage: 5 MG, MDU
  9. GAVISCON LIQUID ^FERRING^ [Concomitant]
     Dosage: 500-267-160 MG/10 ML-10-20 ML NO
  10. GLUCOBAY [Concomitant]
     Dosage: 100 MG, TID
  11. GLYADE [Concomitant]
     Dosage: 80 MG, BID, AC
  12. HEPARIN [Concomitant]
     Dosage: 5000 U/5 ML
  13. INDOCIN [Concomitant]
     Dosage: 100 MG, QD
     Route: 054
  14. IPRATRIN [Concomitant]
     Dosage: 500MCG/ML USE IN NEBULISER 6 HOU
  15. MAXOLON [Concomitant]
     Dosage: 10 MG, 1 TID PRN
  16. METFORMIN HCL [Concomitant]
     Dosage: 100 MG, 1 TID CC
  17. MS CONTIN [Concomitant]
     Dosage: 100 MG, T 1 BD
  18. MS CONTIN [Concomitant]
     Dosage: 30 MG, 1 BD MDU
  19. OXIS TURBUHALER ^ASTRAZENECA^ [Concomitant]
     Dosage: 12 MCG/DOSE 1-2 INHAL BD
  20. PANAMAX [Concomitant]
     Dosage: 500 MG, 1-2 Q 4H PRN
  21. PULMICORT [Concomitant]
     Dosage: 400 MCG/INHAL, 2 INH BD AS DIREC
  22. SOMAC [Concomitant]
     Dosage: 40 MG, 2 NOCTE
  23. STEMETIL ^AVENTIS PHARMA^ [Concomitant]
     Dosage: 5 MG, 1 TID PRN
  24. TEGRETOL-XR [Concomitant]
     Dosage: 200 MG, 2 BD
  25. VENTOLIN NEBULES PF [Concomitant]
     Dosage: 2.5MG/2.5ML, AS VIA NEBULISER
  26. ZACTIN [Concomitant]
     Dosage: 20 MG, BID

REACTIONS (5)
  - ANAPHYLACTIC SHOCK [None]
  - CELLULITIS [None]
  - DRUG HYPERSENSITIVITY [None]
  - DYSPNOEA [None]
  - LOCALISED OEDEMA [None]
